FAERS Safety Report 12460090 (Version 1)
Quarter: 2016Q2

REPORT INFORMATION
  Report Type: Spontaneous
  Country: US (occurrence: US)
  Receive Date: 20160613
  Receipt Date: 20160613
  Transmission Date: 20160815
  Serious: No
  Sender: FDA-Public Use
  Company Number: US-PFIZER INC-2016274750

PATIENT
  Age: 42 Year
  Sex: Female

DRUGS (1)
  1. IBRANCE [Suspect]
     Active Substance: PALBOCICLIB
     Indication: NEOPLASM MALIGNANT
     Dosage: 125 MG, 1X/DAY (BY MOUTH, 1 TABLET)
     Route: 048
     Dates: start: 201605

REACTIONS (6)
  - Anxiety [Unknown]
  - Stomatitis [Unknown]
  - White blood cell count decreased [Unknown]
  - Abdominal discomfort [Unknown]
  - Dermatitis [Unknown]
  - Fatigue [Unknown]
